FAERS Safety Report 21218593 (Version 12)
Quarter: 2025Q2

REPORT INFORMATION
  Report Type: Report from Study
  Country: US (occurrence: US)
  Receive Date: 20220816
  Receipt Date: 20250512
  Transmission Date: 20250717
  Serious: Yes (Congenital Anomaly, Other)
  Sender: NOVARTIS
  Company Number: US-NOVARTISPH-NVSC2022US184139

PATIENT
  Age: 0 Year
  Sex: Female
  Weight: 4.07 kg

DRUGS (4)
  1. KESIMPTA [Suspect]
     Active Substance: OFATUMUMAB
     Indication: Foetal exposure during pregnancy
     Route: 064
  2. MIRALAX [Concomitant]
     Active Substance: POLYETHYLENE GLYCOL 3350
     Indication: Foetal exposure during pregnancy
     Route: 064
  3. PSYLLIUM [Concomitant]
     Active Substance: PLANTAGO SEED
     Indication: Foetal exposure during pregnancy
     Route: 064
  4. DOCUSATE SODIUM [Concomitant]
     Active Substance: DOCUSATE SODIUM
     Indication: Foetal exposure during pregnancy
     Route: 064

REACTIONS (5)
  - Congenital hydronephrosis [Recovered/Resolved]
  - Pyelocaliectasis [Unknown]
  - Cardiac murmur [Unknown]
  - Foetal exposure during pregnancy [Unknown]
  - Exposure via breast milk [Unknown]

NARRATIVE: CASE EVENT DATE: 20220723
